FAERS Safety Report 18593401 (Version 3)
Quarter: 2021Q1

REPORT INFORMATION
  Report Type: Spontaneous
  Country: SE (occurrence: SE)
  Receive Date: 20201208
  Receipt Date: 20210121
  Transmission Date: 20210419
  Serious: Yes (Other)
  Sender: FDA-Public Use
  Company Number: SE-GILEAD-2020-0507942

PATIENT
  Age: 65 Year
  Sex: Female

DRUGS (3)
  1. DESCOVY [Suspect]
     Active Substance: EMTRICITABINE\TENOFOVIR ALAFENAMIDE FUMARATE
     Indication: HIV INFECTION
     Route: 065
  2. TRUVADA [Suspect]
     Active Substance: EMTRICITABINE\TENOFOVIR DISOPROXIL FUMARATE
     Indication: HIV INFECTION
     Dosage: UNK
     Route: 065
  3. TRUVADA [Suspect]
     Active Substance: EMTRICITABINE\TENOFOVIR DISOPROXIL FUMARATE
     Dosage: UNK
     Route: 065

REACTIONS (12)
  - Pain in extremity [Recovered/Resolved]
  - Fatigue [Unknown]
  - Fat tissue increased [Not Recovered/Not Resolved]
  - Chondropathy [Not Recovered/Not Resolved]
  - Weight increased [Not Recovered/Not Resolved]
  - Renal impairment [Unknown]
  - Finger deformity [Recovered/Resolved]
  - Abdominal distension [Unknown]
  - Osteoporosis [Not Recovered/Not Resolved]
  - Loss of libido [Not Recovered/Not Resolved]
  - Lipohypertrophy [Not Recovered/Not Resolved]
  - Musculoskeletal stiffness [Recovered/Resolved]
